FAERS Safety Report 5795561-4 (Version None)
Quarter: 2008Q2

REPORT INFORMATION
  Report Type: 
  Country: None (occurrence: None)
  Receive Date: 20080630
  Receipt Date: 20080626
  Transmission Date: 20081010
  Serious: Yes (Life-Threatening)
  Sender: FDA-Public Use
  Company Number: PHHY2008JP12368

PATIENT

DRUGS (1)
  1. LUDIOMIL [Suspect]
     Dosage: UNK
     Route: 048
     Dates: end: 20080626

REACTIONS (2)
  - CARDIO-RESPIRATORY ARREST [None]
  - NEUROLEPTIC MALIGNANT SYNDROME [None]
